FAERS Safety Report 8972478 (Version 1)
Quarter: 2012Q4

REPORT INFORMATION
  Report Type: Spontaneous
  Country: US (occurrence: None)
  Receive Date: 20121217
  Receipt Date: 20121217
  Transmission Date: 20130627
  Serious: Yes (Other)
  Sender: FDA-Public Use
  Company Number: None

PATIENT
  Age: 70 Year
  Sex: Female

DRUGS (1)
  1. EYLEA 2 MG-0.05ML- REGNERON [Suspect]
     Indication: WET MACULAR DEGENERATION
     Dosage: 8073400020
2mg ery 6-8 weeks ophthalmic
     Dates: start: 20120809, end: 20121004

REACTIONS (1)
  - Uveitis [None]
